FAERS Safety Report 17833490 (Version 1)
Quarter: 2020Q2

REPORT INFORMATION
  Report Type: Spontaneous
  Country: US (occurrence: US)
  Receive Date: 20200527
  Receipt Date: 20200527
  Transmission Date: 20200714
  Serious: Yes (Death)
  Sender: FDA-Public Use
  Company Number: None

PATIENT
  Age: 76 Year
  Sex: Female
  Weight: 62.5 kg

DRUGS (22)
  1. REMDESIVIR. [Suspect]
     Active Substance: REMDESIVIR
     Indication: COVID-19
     Route: 040
     Dates: start: 20200517, end: 20200518
  2. ALBUTEROL. [Concomitant]
     Active Substance: ALBUTEROL
     Dates: start: 20200515, end: 20200516
  3. CEFEPIME [Concomitant]
     Active Substance: CEFEPIME HYDROCHLORIDE
     Dates: start: 20200515, end: 20200521
  4. FENTANYL. [Concomitant]
     Active Substance: FENTANYL
     Dates: start: 20200518, end: 20200520
  5. INSULIN (GLARGINE, REGULAR) [Concomitant]
     Dates: start: 20200517, end: 20200525
  6. MELATONIN [Concomitant]
     Active Substance: MELATONIN
     Dates: start: 20200516, end: 20200524
  7. MIDODRINE [Concomitant]
     Active Substance: MIDODRINE
     Dates: start: 20200522, end: 20200525
  8. LACTULOSE. [Concomitant]
     Active Substance: LACTULOSE
     Dates: start: 20200524, end: 20200525
  9. MAGNESIUM SULFATE IV [Concomitant]
     Active Substance: MAGNESIUM SULFATE
     Dates: start: 20200517, end: 20200525
  10. NORMOSOL-R [Concomitant]
     Active Substance: MAGNESIUM CHLORIDE\POTASSIUM CHLORIDE\SODIUM ACETATE ANHYDROUS\SODIUM CHLORIDE\SODIUM GLUCONATE
     Dates: start: 20200517, end: 20200518
  11. HEPARIN [Concomitant]
     Active Substance: HEPARIN SODIUM
     Dates: start: 20200515, end: 20200525
  12. METRONIDAZOLE. [Concomitant]
     Active Substance: METRONIDAZOLE
     Dates: start: 20200515, end: 20200521
  13. MIDAZOLAM. [Concomitant]
     Active Substance: MIDAZOLAM
     Dates: start: 20200517, end: 20200517
  14. CHLORHEXIDINE ORAL SOLUTION [Concomitant]
     Dates: start: 20200517, end: 20200525
  15. ENOXAPARIN [Concomitant]
     Active Substance: ENOXAPARIN
     Dates: start: 20200515, end: 20200518
  16. NOREPINEPHRINE. [Concomitant]
     Active Substance: NOREPINEPHRINE
     Dates: start: 20200517, end: 20200525
  17. ASPIRIN. [Concomitant]
     Active Substance: ASPIRIN
     Dates: start: 20200516, end: 20200525
  18. TRIAD PASTE WOUND DRESSING [Concomitant]
     Dates: start: 20200516, end: 20200525
  19. LACTATED RINGERS SOLUTION [Concomitant]
     Active Substance: CALCIUM CHLORIDE\POTASSIUM CHLORIDE\SODIUM CHLORIDE\SODIUM LACTATE
     Dates: start: 20200518, end: 20200518
  20. MORPHINE SULFATE. [Concomitant]
     Active Substance: MORPHINE SULFATE
     Dates: start: 20200516, end: 20200517
  21. PANTOPRAZOLE [Concomitant]
     Active Substance: PANTOPRAZOLE
     Dates: start: 20200517, end: 20200525
  22. HYDROCORTISONE IV [Concomitant]
     Dates: start: 20200519, end: 20200524

REACTIONS (7)
  - Sepsis [None]
  - Hypoxia [None]
  - Cough [None]
  - Acidosis [None]
  - Acute respiratory failure [None]
  - Dyspnoea [None]
  - Renal impairment [None]

NARRATIVE: CASE EVENT DATE: 20200524
